FAERS Safety Report 5707833-X (Version None)
Quarter: 2008Q2

REPORT INFORMATION
  Report Type: 
  Country: None (occurrence: None)
  Receive Date: 20080417
  Receipt Date: 20080408
  Transmission Date: 20081010
  Serious: Yes (Hospitalization, Other)
  Sender: FDA-Public Use
  Company Number: GB-JNJFOC-20080402600

PATIENT
  Sex: Male
  Weight: 65 kg

DRUGS (7)
  1. REMICADE [Suspect]
     Route: 042
  2. REMICADE [Suspect]
     Indication: RHEUMATOID ARTHRITIS
     Route: 042
  3. VITAMIN B-12 [Concomitant]
  4. CO-PROXAMOL [Concomitant]
  5. FLURBIPROFEN [Concomitant]
  6. FOLIC ACID [Concomitant]
  7. METHOTREXATE [Concomitant]

REACTIONS (1)
  - LUNG NEOPLASM MALIGNANT [None]
